FAERS Safety Report 7176447-X (Version None)
Quarter: 2010Q4

REPORT INFORMATION
  Report Type: 
  Country: None (occurrence: None)
  Receive Date: 20101215
  Receipt Date: 20101215
  Transmission Date: 20110411
  Serious: No
  Sender: FDA-Public Use
  Company Number: None

PATIENT

DRUGS (1)
  1. DEMEROL [Suspect]
     Dosage: 1-2CC 10MIN IV
     Route: 042

REACTIONS (2)
  - INJECTION SITE ERYTHEMA [None]
  - PRURITUS [None]
